FAERS Safety Report 7299485-5 (Version None)
Quarter: 2011Q1

REPORT INFORMATION
  Report Type: 
  Country: None (occurrence: None)
  Receive Date: 20110217
  Receipt Date: 20110211
  Transmission Date: 20110831
  Serious: Yes (Hospitalization, Other)
  Sender: FDA-Public Use
  Company Number: US-AMGEN-USASP2011008854

PATIENT
  Sex: Male

DRUGS (3)
  1. NPLATE [Suspect]
     Indication: IDIOPATHIC THROMBOCYTOPENIC PURPURA
     Dosage: 570 A?G, UNK
     Dates: start: 20100216, end: 20101216
  2. COUMADIN [Concomitant]
  3. PREDNISONE TAB [Concomitant]
     Indication: IDIOPATHIC THROMBOCYTOPENIC PURPURA
     Dosage: 10 MG, BID

REACTIONS (3)
  - THROMBOSIS [None]
  - EMBOLISM ARTERIAL [None]
  - CEREBROVASCULAR ACCIDENT [None]
